FAERS Safety Report 7525361-6 (Version None)
Quarter: 2011Q2

REPORT INFORMATION
  Report Type: 
  Country: None (occurrence: None)
  Receive Date: 20110606
  Receipt Date: 20110530
  Transmission Date: 20111010
  Serious: Yes (Other)
  Sender: FDA-Public Use
  Company Number: CA-TEVA-283998USA

PATIENT
  Age: 48 Year
  Sex: Male

DRUGS (2)
  1. FINASTERIDE [Suspect]
     Indication: ANDROGENETIC ALOPECIA
  2. ZOPICLONE [Concomitant]

REACTIONS (2)
  - INFERTILITY MALE [None]
  - SPERMATOZOA ABNORMAL [None]
